FAERS Safety Report 16989403 (Version 1)
Quarter: 2019Q4

REPORT INFORMATION
  Report Type: Spontaneous
  Country: US (occurrence: US)
  Receive Date: 20190919
  Receipt Date: 20190919
  Transmission Date: 20200122
  Serious: No
  Sender: FDA-Public Use
  Company Number: None

PATIENT
  Age: 53 Year

DRUGS (1)
  1. IMATINIB MESYLATE. [Suspect]
     Active Substance: IMATINIB MESYLATE
     Indication: PLASMA CELL MYELOMA
     Dates: start: 20190726

REACTIONS (4)
  - Dyspepsia [None]
  - Abdominal discomfort [None]
  - Gastrooesophageal reflux disease [None]
  - Abdominal pain [None]

NARRATIVE: CASE EVENT DATE: 201909
